FAERS Safety Report 9705715 (Version 1)
Quarter: 2013Q4

REPORT INFORMATION
  Report Type: Spontaneous
  Country: US (occurrence: US)
  Receive Date: 20131122
  Receipt Date: 20131122
  Transmission Date: 20140711
  Serious: No
  Sender: FDA-Public Use
  Company Number: US-GILEAD-2008-0017811

PATIENT
  Sex: Female
  Weight: 81.19 kg

DRUGS (16)
  1. LETAIRIS [Suspect]
     Indication: PULMONARY ARTERIAL HYPERTENSION
     Route: 048
     Dates: start: 20080130
  2. LASIX [Concomitant]
     Route: 048
  3. COUMADIN [Concomitant]
     Route: 048
  4. LIPITOR [Concomitant]
     Route: 048
  5. STARLIX [Concomitant]
     Dosage: AS DIRECTED
     Route: 048
  6. NITRO-DUR [Concomitant]
     Dosage: AS DIRECTED
     Route: 048
  7. SPIRONOLACTONE [Concomitant]
     Dosage: AS DIRECTED
     Route: 048
  8. METFORMIN [Concomitant]
     Dosage: AS DIRECTED
     Route: 048
  9. ALBUTEROL [Concomitant]
     Dosage: AS DIRECTED
  10. HYDRALAZINE [Concomitant]
     Dosage: AS DIRECTED
     Route: 048
  11. PRILOSEC [Concomitant]
     Route: 048
  12. OXYGEN [Concomitant]
     Dosage: AT NIGHT
     Route: 055
  13. SYNTHROID [Concomitant]
     Dosage: AS DIRECTED
     Route: 048
  14. TYLENOL [Concomitant]
     Dosage: AS DIRECTED
     Route: 048
  15. FOLIC ACID [Concomitant]
     Route: 048
  16. POTASSIUM CHLORIDE [Concomitant]
     Dosage: AS DIRECTED
     Route: 048

REACTIONS (1)
  - Liver function test abnormal [None]
